FAERS Safety Report 19085214 (Version 2)
Quarter: 2021Q2

REPORT INFORMATION
  Report Type: Spontaneous
  Country: US (occurrence: US)
  Receive Date: 20210402
  Receipt Date: 20210517
  Transmission Date: 20210717
  Serious: No
  Sender: FDA-Public Use
  Company Number: US-SA-2021SA109205

PATIENT
  Sex: Female

DRUGS (10)
  1. LEVOTHYROXINE SODIUM. [Concomitant]
     Active Substance: LEVOTHYROXINE SODIUM
  2. AUBAGIO [Suspect]
     Active Substance: TERIFLUNOMIDE
     Indication: MULTIPLE SCLEROSIS
     Route: 048
  3. PRED [PREDNISONE] [Concomitant]
  4. AVONEX [Concomitant]
     Active Substance: INTERFERON BETA-1A
  5. AUBAGIO [Suspect]
     Active Substance: TERIFLUNOMIDE
     Dosage: 1 DF, QD
     Route: 048
  6. TRIVORA?28 [Concomitant]
  7. AVONEX [Concomitant]
     Active Substance: INTERFERON BETA-1A
  8. LEVOTHYROXINE SODIUM. [Concomitant]
     Active Substance: LEVOTHYROXINE SODIUM
  9. TRAMADOL HCL [Concomitant]
     Active Substance: TRAMADOL HYDROCHLORIDE
  10. TRIVORA?28 [Concomitant]

REACTIONS (2)
  - Product dose omission in error [Unknown]
  - Product dose omission issue [Unknown]
